FAERS Safety Report 20127485 (Version 1)
Quarter: 2021Q4

REPORT INFORMATION
  Report Type: Spontaneous
  Country: US (occurrence: None)
  Receive Date: 20211129
  Receipt Date: 20211129
  Transmission Date: 20220304
  Serious: Yes (Other)
  Sender: FDA-Public Use
  Company Number: None

PATIENT
  Age: 31 Year
  Sex: Female
  Weight: 76.5 kg

DRUGS (1)
  1. PHEXXI [Suspect]
     Active Substance: CITRIC ACID MONOHYDRATE\LACTIC ACID, L-\POTASSIUM BITARTRATE
     Indication: Contraception
     Dosage: OTHER QUANTITY : 1 VAGINAL APPLICATOR;?FREQUENCY : AS NEEDED;?
     Route: 067
     Dates: start: 20211027, end: 20211129

REACTIONS (2)
  - Unintended pregnancy [None]
  - Pregnancy on contraceptive [None]

NARRATIVE: CASE EVENT DATE: 20211129
